FAERS Safety Report 9943116 (Version 2)
Quarter: 2014Q1

REPORT INFORMATION
  Report Type: Report from Study
  Country: DE (occurrence: DE)
  Receive Date: 20140303
  Receipt Date: 20140303
  Transmission Date: 20141002
  Serious: Yes (Other)
  Sender: FDA-Public Use
  Company Number: PHHO2013DE003106

PATIENT
  Sex: 0

DRUGS (10)
  1. MIDOSTAURIN [Suspect]
     Indication: ACUTE MYELOID LEUKAEMIA
     Dosage: 50 MG, BID
     Route: 048
     Dates: start: 20130221
  2. METOHEXAL [Suspect]
     Dosage: 47.5 MG, (1/2 TABLET)
  3. CYTARABINE [Suspect]
     Indication: ACUTE MYELOID LEUKAEMIA
     Dosage: 330 MG, QD
     Route: 042
     Dates: start: 20130212
  4. DAUNORUBICIN [Suspect]
     Indication: ACUTE MYELOID LEUKAEMIA
     Dosage: 250 ML, QD
     Route: 042
     Dates: start: 20130212
  5. VFEND [Suspect]
     Indication: PROPHYLAXIS
     Dosage: 200 MG, BID
     Route: 048
     Dates: start: 20130209, end: 20130218
  6. VFEND [Suspect]
     Dosage: 200 MG, UNK
     Route: 042
     Dates: start: 20130219
  7. MERONEM [Suspect]
     Indication: PYREXIA
     Dosage: 1 G, UNK
     Route: 042
     Dates: start: 20130221
  8. REMERGIL [Suspect]
     Indication: DEPRESSION
     Dosage: 30 MG, QD
     Dates: start: 20130209, end: 20130213
  9. REMERGIL [Suspect]
     Dosage: 15 UNK, UNK
     Dates: start: 20130215
  10. PIP/TAZO [Suspect]
     Indication: PYREXIA
     Dosage: 4.5 G, UNK
     Route: 042
     Dates: start: 20130205, end: 20130221

REACTIONS (3)
  - Electrocardiogram QT prolonged [Recovered/Resolved]
  - Vomiting [Recovered/Resolved]
  - Nausea [Recovered/Resolved]
